FAERS Safety Report 23406407 (Version 1)
Quarter: 2024Q1

REPORT INFORMATION
  Report Type: Report from Study
  Country: US (occurrence: None)
  Receive Date: 20240116
  Receipt Date: 20240116
  Transmission Date: 20240410
  Serious: Yes (Hospitalization)
  Sender: FDA-Public Use
  Company Number: 2024A005644

PATIENT
  Sex: Male
  Weight: 66.2 kg

DRUGS (7)
  1. KOSELUGO [Suspect]
     Active Substance: SELUMETINIB
     Indication: Nervous system neoplasm benign
     Route: 048
     Dates: start: 20210921
  2. ALBUTEROL [Concomitant]
     Active Substance: ALBUTEROL
  3. CLINDAGEL [Concomitant]
     Active Substance: CLINDAMYCIN PHOSPHATE
  4. LOPERAMIDE [Concomitant]
     Active Substance: LOPERAMIDE
  5. MONTELUKAST [Concomitant]
     Active Substance: MONTELUKAST SODIUM
  6. UNSPECIFIED INGREDIENT [Concomitant]
     Active Substance: UNSPECIFIED INGREDIENT
  7. ZOFRAN [Concomitant]
     Active Substance: ONDANSETRON HYDROCHLORIDE

REACTIONS (4)
  - Pain [Unknown]
  - Diarrhoea [Unknown]
  - Vomiting [Unknown]
  - Pyrexia [Unknown]
